FAERS Safety Report 24637842 (Version 2)
Quarter: 2024Q4

REPORT INFORMATION
  Report Type: Spontaneous
  Country: NL (occurrence: NL)
  Receive Date: 20241119
  Receipt Date: 20241204
  Transmission Date: 20250115
  Serious: Yes (Other)
  Sender: TEVA
  Company Number: None

PATIENT
  Age: 82 Year
  Sex: Male
  Weight: 78.2 kg

DRUGS (10)
  1. CARBIDOPA AND LEVODOPA [Suspect]
     Active Substance: CARBIDOPA\LEVODOPA
     Indication: Parkinson^s disease
     Dosage: 4X DAILY 350/62.5MG (3 TBL 100/25 + 1 TBL 50/12.5): LEVODOPA/CARBIDOPA 100/25MG / BRAND NAME NOT ...
     Route: 048
     Dates: start: 20190716
  2. RIVASTIGMINE [Concomitant]
     Active Substance: RIVASTIGMINE
     Indication: Product used for unknown indication
     Dosage: PLASTER/ BRAND NAME NOT SPECIFIED
     Route: 065
  3. BENSERAZIDE\LEVODOPA [Concomitant]
     Active Substance: BENSERAZIDE\LEVODOPA
     Indication: Product used for unknown indication
     Dosage: 100/25 MG (MILLIGRAM); LEVODOPA/BENSERAZIDE 100/25MG / BRAND NAME NOT SPECIFIED
     Route: 065
  4. DUTASTERIDE\TAMSULOSIN [Concomitant]
     Active Substance: DUTASTERIDE\TAMSULOSIN
     Indication: Product used for unknown indication
     Dosage: 0.5/0.4 MG (MILLIGRAM); DUTASTERIDE/TAMSULOSIN 0.5/0.4MG
     Route: 065
  5. TELMISARTAN [Concomitant]
     Active Substance: TELMISARTAN
     Indication: Product used for unknown indication
     Dosage: BRAND NAME NOT SPECIFIED
     Route: 065
  6. VERAPAMIL [Concomitant]
     Active Substance: VERAPAMIL HYDROCHLORIDE
     Indication: Product used for unknown indication
     Dosage: TABLET MGA / BRAND NAME NOT SPECIFIED
     Route: 048
  7. PANTOPRAZOLE SODIUM [Concomitant]
     Active Substance: PANTOPRAZOLE SODIUM
     Indication: Product used for unknown indication
     Dosage: PANTOPRAZOL TABLET MSR/ BRAND NAME NOT SPECIFIED
     Route: 065
  8. CARBIDOPA AND LEVODOPA [Concomitant]
     Active Substance: CARBIDOPA\LEVODOPA
     Indication: Product used for unknown indication
     Dosage: 100/25 MG (MILLIGRAM); LEVODOPA/CARBIDOPA TABLET MGA 100/25MG / BRAND NAME NOT SPECIFIED
     Route: 065
  9. MOVICOLON [Concomitant]
     Active Substance: POLYETHYLENE GLYCOL 3350\POTASSIUM CHLORIDE\SODIUM BICARBONATE\SODIUM CHLORIDE
     Indication: Product used for unknown indication
     Dosage: POWDER FOR DRINK; MACROGOL/SALTS PDR V DRINK (MOVIC/MOLAX/GEN CITR) / POWDER FOR DRINK IN SACHET
     Route: 065
  10. CLOPIDOGREL [Concomitant]
     Active Substance: CLOPIDOGREL BISULFATE
     Indication: Product used for unknown indication
     Dosage: BRAND NAME NOT SPECIFIED
     Route: 065

REACTIONS (2)
  - Polyneuropathy [Unknown]
  - Vitamin B6 deficiency [Unknown]
